FAERS Safety Report 7216068-3 (Version None)
Quarter: 2011Q1

REPORT INFORMATION
  Report Type: 
  Country: None (occurrence: None)
  Receive Date: 20110107
  Receipt Date: 20101230
  Transmission Date: 20110831
  Serious: Yes (Other)
  Sender: FDA-Public Use
  Company Number: GB-PFIZER INC-2010181733

PATIENT
  Sex: Female

DRUGS (2)
  1. XALATAN [Suspect]
     Indication: GLAUCOMA
     Dosage: 1 DROP IN EACH EYE EVERY EVENING
     Route: 047
  2. XALATAN [Suspect]
     Dosage: 1 DROP IN EACH EYE EVERY EVENING

REACTIONS (5)
  - MEDICATION ERROR [None]
  - EYE HAEMORRHAGE [None]
  - ABNORMAL SENSATION IN EYE [None]
  - HEADACHE [None]
  - INTRAOCULAR PRESSURE INCREASED [None]
